FAERS Safety Report 6511674-3 (Version None)
Quarter: 2009Q4

REPORT INFORMATION
  Report Type: 
  Country: None (occurrence: None)
  Receive Date: 20091222
  Receipt Date: 20090707
  Transmission Date: 20100525
  Serious: No
  Sender: FDA-Public Use
  Company Number: US-ASTRAZENECA-2009UW10928

PATIENT
  Age: 78 Year
  Sex: Female
  Weight: 64.9 kg

DRUGS (2)
  1. CRESTOR [Suspect]
     Route: 048
  2. BONIVA [Concomitant]

REACTIONS (1)
  - HYPERCALCAEMIA [None]
